FAERS Safety Report 6448049-1 (Version None)
Quarter: 2009Q4

REPORT INFORMATION
  Report Type: 
  Country: None (occurrence: None)
  Receive Date: 20091120
  Receipt Date: 20091111
  Transmission Date: 20100525
  Serious: Yes (Other)
  Sender: FDA-Public Use
  Company Number: US-JNJFOC-20091103921

PATIENT
  Sex: Female
  Weight: 83.46 kg

DRUGS (7)
  1. REMICADE [Suspect]
     Indication: RHEUMATOID ARTHRITIS
     Route: 042
  2. CELEBREX [Concomitant]
     Indication: ARTHRITIS
     Route: 048
  3. METHOTREXATE [Concomitant]
     Indication: ARTHRITIS
     Route: 048
  4. PLAQUENIL [Concomitant]
     Indication: ARTHRITIS
     Route: 048
  5. ESTROGEN [Concomitant]
     Route: 048
  6. PROGESTERONE [Concomitant]
     Route: 048
  7. FLEXERIL [Concomitant]
     Indication: ARTHRITIS
     Route: 048

REACTIONS (1)
  - COCCIDIOIDOMYCOSIS [None]
